FAERS Safety Report 4717210-6 (Version None)
Quarter: 2005Q3

REPORT INFORMATION
  Report Type: 
  Country: None (occurrence: None)
  Receive Date: 20050715
  Receipt Date: 20050707
  Transmission Date: 20060218
  Serious: Yes (Other)
  Sender: FDA-Public Use
  Company Number: 2005-07-0188

PATIENT
  Age: 24 Year
  Sex: Female
  Weight: 43 kg

DRUGS (5)
  1. CLARINEX [Suspect]
     Indication: HYPERSENSITIVITY
     Dosage: 5 MG QD
     Dates: start: 20050608, end: 20050701
  2. SERETIDE ( SALMETEROL XINAFOATE/FLUTICASONE PROPIONATE) [Concomitant]
  3. VENTOLIN [Concomitant]
  4. MAG 2 TABLETS [Concomitant]
  5. TRACE METAL ADDITIVE IN NACL [Concomitant]

REACTIONS (8)
  - ABDOMINAL PAIN UPPER [None]
  - ANOREXIA [None]
  - DIARRHOEA [None]
  - HEADACHE [None]
  - NAUSEA [None]
  - PHARYNGOLARYNGEAL PAIN [None]
  - VOMITING [None]
  - WEIGHT DECREASED [None]
